FAERS Safety Report 7886551-6 (Version None)
Quarter: 2011Q4

REPORT INFORMATION
  Report Type: 
  Country: None (occurrence: None)
  Receive Date: 20111102
  Receipt Date: 20111021
  Transmission Date: 20120403
  Serious: Yes (Hospitalization)
  Sender: FDA-Public Use
  Company Number: JP-ELI_LILLY_AND_COMPANY-JP201106004422

PATIENT
  Sex: Male
  Weight: 55.3 kg

DRUGS (12)
  1. DECADRON [Concomitant]
     Indication: PROPHYLAXIS OF NAUSEA AND VOMITING
     Dosage: 6.6 MG, QD
     Route: 042
     Dates: start: 20110518
  2. DEXAMETHASONE SODIUM PHOSPHATE [Concomitant]
     Indication: PROPHYLAXIS OF NAUSEA AND VOMITING
     Dosage: 6.6 MG, QD
     Route: 042
     Dates: start: 20110224, end: 20110420
  3. BETAMETHASONE [Concomitant]
     Indication: PROPHYLAXIS OF NAUSEA AND VOMITING
     Dosage: 0.5 MG, TID
     Route: 048
     Dates: start: 20110225, end: 20110423
  4. ZOFRAN [Concomitant]
     Indication: PROPHYLAXIS OF NAUSEA AND VOMITING
     Dosage: 1 DF, QD
     Route: 048
     Dates: start: 20110225, end: 20110423
  5. ALIMTA [Suspect]
     Indication: LUNG ADENOCARCINOMA STAGE IV
     Dosage: 800 MG, OTHER
     Route: 042
     Dates: start: 20110224
  6. CISPLATIN [Concomitant]
     Indication: LUNG ADENOCARCINOMA STAGE IV
  7. PANVITAN [Concomitant]
     Indication: PROPHYLAXIS
     Dosage: 1 G, UNK
     Route: 048
  8. DECADRON [Concomitant]
     Dosage: 2 MG, BID
     Route: 048
     Dates: start: 20110518
  9. METHYCOOL [Concomitant]
     Indication: PROPHYLAXIS
     Dosage: 1500 UG, UNK
     Route: 048
  10. GRANISETRON [Concomitant]
     Indication: PROPHYLAXIS OF NAUSEA AND VOMITING
     Dosage: 3 MG, QD
     Route: 042
     Dates: start: 20110224, end: 20110420
  11. RAMELTEON [Concomitant]
     Indication: PROPHYLAXIS OF NAUSEA AND VOMITING
     Dosage: 1 IU, QD
     Route: 042
     Dates: start: 20110518
  12. PARAPLATIN [Concomitant]
     Indication: LUNG ADENOCARCINOMA STAGE IV

REACTIONS (4)
  - CONFUSIONAL STATE [None]
  - BLOOD IRON INCREASED [None]
  - INSOMNIA [None]
  - DELIRIUM [None]
